FAERS Safety Report 14392597 (Version 1)
Quarter: 2018Q1

REPORT INFORMATION
  Report Type: Spontaneous
  Country: US (occurrence: US)
  Receive Date: 20180112
  Receipt Date: 20180112
  Transmission Date: 20180509
  Serious: Yes (Other)
  Sender: FDA-Public Use
  Company Number: None

PATIENT
  Age: 19 Year
  Sex: Female
  Weight: 43.3 kg

DRUGS (5)
  1. ONDANSETRON [Concomitant]
     Active Substance: ONDANSETRON
  2. PREDNISONE. [Concomitant]
     Active Substance: PREDNISONE
  3. ROLAPITANT [Suspect]
     Active Substance: ROLAPITANT
     Indication: VOMITING
     Route: 041
     Dates: start: 20180109, end: 20180109
  4. METOPROLOL TARTRATE. [Concomitant]
     Active Substance: METOPROLOL TARTRATE
  5. AMPICILLIN-SUL BACTAM [Concomitant]

REACTIONS (9)
  - Cough [None]
  - Vomiting [None]
  - Urinary incontinence [None]
  - Chest pain [None]
  - Muscle rigidity [None]
  - Vision blurred [None]
  - Respiratory arrest [None]
  - Syncope [None]
  - Infusion related reaction [None]

NARRATIVE: CASE EVENT DATE: 20180109
